FAERS Safety Report 15614278 (Version 6)
Quarter: 2023Q2

REPORT INFORMATION
  Report Type: Spontaneous
  Country: AT (occurrence: AT)
  Receive Date: 20181113
  Receipt Date: 20230410
  Transmission Date: 20230721
  Serious: Yes (Other)
  Sender: FDA-Public Use
  Company Number: AT-BRISTOL-MYERS SQUIBB COMPANY-BMS-2018-044343

PATIENT
  Age: 29 Year
  Sex: Female

DRUGS (20)
  1. PACLITAXEL [Suspect]
     Active Substance: PACLITAXEL
     Indication: Hodgkin^s disease refractory
     Dosage: UNK
     Route: 065
     Dates: start: 2014, end: 2014
  2. PACLITAXEL [Suspect]
     Active Substance: PACLITAXEL
     Indication: Hodgkin^s disease
  3. CYTARABINE [Suspect]
     Active Substance: CYTARABINE
     Indication: Hodgkin^s disease refractory
     Dosage: UNK
     Route: 065
  4. GEMCITABINE [Suspect]
     Active Substance: GEMCITABINE
     Indication: Hodgkin^s disease refractory
     Dosage: UNK
     Route: 065
  5. PIXANTRONE DIMALEATE [Suspect]
     Active Substance: PIXANTRONE DIMALEATE
     Indication: Hodgkin^s disease
     Dosage: UNK
     Route: 042
     Dates: start: 2014, end: 2014
  6. PIXANTRONE DIMALEATE [Suspect]
     Active Substance: PIXANTRONE DIMALEATE
     Indication: Hodgkin^s disease refractory
  7. RUXOLITINIB [Suspect]
     Active Substance: RUXOLITINIB
     Indication: Hodgkin^s disease
     Dosage: 20 MILLIGRAM, BID
     Route: 065
  8. RUXOLITINIB [Suspect]
     Active Substance: RUXOLITINIB
     Dosage: 25 MILLIGRAM, BID
     Route: 065
  9. RUXOLITINIB [Suspect]
     Active Substance: RUXOLITINIB
     Dosage: 10 MILLIGRAM, BID
     Route: 065
  10. RITUXIMAB [Suspect]
     Active Substance: RITUXIMAB
     Indication: Hodgkin^s disease refractory
     Dosage: UNK
     Route: 065
  11. BICNU [Suspect]
     Active Substance: CARMUSTINE
     Indication: Hodgkin^s disease refractory
     Dosage: UNK
     Route: 065
  12. MELPHALAN [Suspect]
     Active Substance: MELPHALAN
     Indication: Hodgkin^s disease refractory
     Dosage: UNK
     Route: 065
  13. OXALIPLATIN [Suspect]
     Active Substance: OXALIPLATIN
     Indication: Hodgkin^s disease refractory
     Dosage: UNK
     Route: 065
  14. DEXAMETHASONE [Suspect]
     Active Substance: DEXAMETHASONE
     Indication: Hodgkin^s disease refractory
     Dosage: UNK
     Route: 065
  15. ETOPOSIDE [Suspect]
     Active Substance: ETOPOSIDE
     Indication: Hodgkin^s disease refractory
     Dosage: UNK
     Route: 065
  16. BRENTUXIMAB VEDOTIN [Concomitant]
     Active Substance: BRENTUXIMAB VEDOTIN
     Indication: Hodgkin^s disease refractory
     Dosage: UNK
     Route: 065
     Dates: start: 2013
  17. GRANULOCYTE COLONY-STIMULATING FACTOR NOS [Concomitant]
     Active Substance: GRANULOCYTE COLONY-STIMULATING FACTOR NOS
     Dosage: UNK
     Route: 065
  18. CISPLATIN [Concomitant]
     Active Substance: CISPLATIN
     Indication: Hodgkin^s disease refractory
     Dosage: UNK
     Route: 065
     Dates: start: 201307
  19. CYTARABINE [Concomitant]
     Active Substance: CYTARABINE
     Dosage: UNK
     Route: 065
     Dates: start: 201307
  20. GRANULOCYTE COLONY-STIMULATING FACTOR NOS [Concomitant]
     Active Substance: GRANULOCYTE COLONY-STIMULATING FACTOR NOS
     Indication: Hodgkin^s disease
     Dosage: UNK
     Route: 065
     Dates: start: 2014

REACTIONS (10)
  - Hodgkin^s disease [Unknown]
  - Recurrent cancer [Unknown]
  - Lymphadenopathy [Recovered/Resolved]
  - Sepsis [Recovering/Resolving]
  - Opportunistic infection [Recovering/Resolving]
  - Product use in unapproved indication [Unknown]
  - Disease progression [Unknown]
  - General symptom [Recovered/Resolved]
  - Inflammatory marker increased [Recovered/Resolved]
  - Product use issue [Recovered/Resolved]

NARRATIVE: CASE EVENT DATE: 20140101
